FAERS Safety Report 19994852 (Version 2)
Quarter: 2021Q4

REPORT INFORMATION
  Report Type: Spontaneous
  Country: US (occurrence: US)
  Receive Date: 20211026
  Receipt Date: 20211027
  Transmission Date: 20220303
  Serious: No
  Sender: FDA-Public Use
  Company Number: US-BIOGEN-2021BI01060723

PATIENT
  Age: 77 Year
  Sex: Female

DRUGS (1)
  1. PLEGRIDY [Suspect]
     Active Substance: PEGINTERFERON BETA-1A
     Indication: Multiple sclerosis
     Route: 065
     Dates: start: 20150211

REACTIONS (6)
  - Drug delivery system malfunction [Recovered/Resolved]
  - Inappropriate schedule of product administration [Recovered/Resolved]
  - Multiple sclerosis [Not Recovered/Not Resolved]
  - Arthritis [Not Recovered/Not Resolved]
  - Malaise [Recovered/Resolved]
  - Injection site bruising [Not Recovered/Not Resolved]

NARRATIVE: CASE EVENT DATE: 20210801
